FAERS Safety Report 9441590 (Version 1)
Quarter: 2013Q3

REPORT INFORMATION
  Report Type: Report from Study
  Country: CL (occurrence: CL)
  Receive Date: 20130806
  Receipt Date: 20130806
  Transmission Date: 20140515
  Serious: Yes (Other)
  Sender: FDA-Public Use
  Company Number: CL-ROCHE-1253903

PATIENT
  Age: 47 Year
  Sex: Female
  Weight: 67 kg

DRUGS (2)
  1. XELODA [Suspect]
     Indication: BREAST CANCER
     Dosage: 14 DAY CYCLE?LAST DOSE PRIOR TO SAE: 21/JUN/2013
     Route: 048
     Dates: start: 20121025, end: 20130712
  2. ZOLEDRONIC ACID [Suspect]
     Indication: BONE METABOLISM DISORDER
     Route: 042
     Dates: start: 201304, end: 20130712

REACTIONS (3)
  - Pulmonary mass [Unknown]
  - Breast inflammation [Not Recovered/Not Resolved]
  - Breast induration [Not Recovered/Not Resolved]
